FAERS Safety Report 9664362 (Version 1)
Quarter: 2013Q4

REPORT INFORMATION
  Report Type: Spontaneous
  Country: NO (occurrence: NO)
  Receive Date: 20131101
  Receipt Date: 20131101
  Transmission Date: 20140711
  Serious: No
  Sender: FDA-Public Use
  Company Number: NO-UCBSA-101730

PATIENT
  Age: 27 Year
  Sex: Female

DRUGS (2)
  1. KEPPRA [Suspect]
  2. ZONEGRAM [Concomitant]

REACTIONS (1)
  - Haemorrhage [Unknown]
